FAERS Safety Report 9861794 (Version 1)
Quarter: 2014Q1

REPORT INFORMATION
  Report Type: Spontaneous
  Country: US (occurrence: US)
  Receive Date: 20140203
  Receipt Date: 20140203
  Transmission Date: 20141002
  Serious: No
  Sender: FDA-Public Use
  Company Number: US-BAYER-2014-016854

PATIENT
  Age: 47 Year
  Sex: Female
  Weight: 127 kg

DRUGS (4)
  1. ALEVE CAPLET [Suspect]
     Dosage: 2 DF, BID
     Route: 048
     Dates: start: 2013
  2. ADVAIR [Concomitant]
  3. PRILOSEC [Concomitant]
  4. HYDROCHLOROTHIAZIDE [Concomitant]

REACTIONS (3)
  - Extra dose administered [None]
  - Therapeutic response unexpected [None]
  - Therapeutic response unexpected [None]
